FAERS Safety Report 9182953 (Version 1)
Quarter: 2013Q1

REPORT INFORMATION
  Report Type: Spontaneous
  Country: GB (occurrence: GB)
  Receive Date: 20130322
  Receipt Date: 20130322
  Transmission Date: 20140127
  Serious: Yes (Other)
  Sender: FDA-Public Use
  Company Number: GB-ELI_LILLY_AND_COMPANY-GB201303003239

PATIENT
  Age: 28 Year
  Sex: Male

DRUGS (5)
  1. OLANZAPINE [Suspect]
     Indication: PSYCHOTIC DISORDER
     Dosage: 55 MG, QD
  2. CLOZARIL [Concomitant]
     Indication: SCHIZOPHRENIA
     Dosage: 12.5 MG, UNK
     Route: 048
     Dates: start: 20061117
  3. CLOZARIL [Concomitant]
     Dosage: 6.5 MG, UNK
     Dates: start: 20061122, end: 20061123
  4. CLOZARIL [Concomitant]
     Dosage: 12.5 MG, UNK
     Dates: start: 20061124, end: 20061124
  5. SIMVASTATIN [Concomitant]

REACTIONS (5)
  - Drug interaction [Unknown]
  - Vomiting [Recovered/Resolved]
  - Neutropenia [Unknown]
  - Nausea [Unknown]
  - Prescribed overdose [Not Recovered/Not Resolved]
